FAERS Safety Report 6866198-0 (Version None)
Quarter: 2010Q3

REPORT INFORMATION
  Report Type: 
  Country: None (occurrence: None)
  Receive Date: 20100722
  Receipt Date: 20100714
  Transmission Date: 20110219
  Serious: Yes (Hospitalization, Other)
  Sender: FDA-Public Use
  Company Number: AU-WYE-G06401010

PATIENT
  Age: 38 Year
  Sex: Female

DRUGS (4)
  1. PRISTIQ [Suspect]
     Dates: start: 20100701, end: 20100704
  2. PRISTIQ [Suspect]
     Dates: start: 20100707, end: 20100701
  3. NUVARING [Concomitant]
  4. TRAMADOL HCL [Concomitant]

REACTIONS (6)
  - ANXIETY [None]
  - HYPONATRAEMIA [None]
  - MIGRAINE [None]
  - MYALGIA [None]
  - SEROTONIN SYNDROME [None]
  - TREMOR [None]
